FAERS Safety Report 9851080 (Version 2)
Quarter: 2014Q1

REPORT INFORMATION
  Report Type: Spontaneous
  Country: US (occurrence: US)
  Receive Date: 20140128
  Receipt Date: 20140311
  Transmission Date: 20141002
  Serious: Yes (Hospitalization, Other)
  Sender: FDA-Public Use
  Company Number: US-VERTEX PHARMACEUTICALS INC-2014-000405

PATIENT
  Age: 34 Year
  Sex: Male

DRUGS (30)
  1. KALYDECO [Suspect]
     Indication: CYSTIC FIBROSIS
     Dosage: 150 MG, BID
     Dates: start: 20120203
  2. PREDNISONE [Concomitant]
     Dosage: 15 MG, QD TAPERING
  3. XOPENEX [Concomitant]
     Dosage: 1.25 MG, AEROSOL 4+X/DAY
  4. PULMOZYME [Concomitant]
     Dosage: 2.5 MG, AEROSOL
  5. HYPERTONIC SALINE SOLUTION [Concomitant]
     Dosage: UNK, QD/ BID
  6. TOBI [Concomitant]
     Dosage: 75 MG, BID INHALED, EVERY OTHER MONTH
  7. CAYSTON [Concomitant]
     Dosage: 75 MG, TID ON OFF TOBI MONTH
  8. ADVAIR [Concomitant]
     Dosage: 2 PUTTS WITH A SPACER, BID
  9. BETAMETHASONE [Concomitant]
     Dosage: 0-BID ADDED TO SINUS NEBULIZER
  10. PROBIOTICS [Concomitant]
     Dosage: 1 DF, QD-BID
  11. ZENPEP [Concomitant]
     Dosage: 3-7 CAPS WITH MEALS, 0-3 CAPS WITH SNACK
  12. SCANDISHAKE/OTHER THERAPEUTIC PRODUCTS [Concomitant]
     Dosage: SEVERAL/DAY
  13. URSODIOL [Concomitant]
     Dosage: 300 MG, BID
  14. LEVOTHYROXIN [Concomitant]
  15. HYDROXYCHLOROQUINE [Concomitant]
  16. VITAMIN D3 [Concomitant]
     Dosage: 1000 IU, QD
  17. VITAMIN D [Concomitant]
     Dosage: 1 DF, BID
  18. CENTRUM [Concomitant]
     Dosage: 1 DF, BID
  19. ADEK [Concomitant]
     Dosage: 1 DF, BID
  20. MEPHYTON [Concomitant]
     Dosage: 5 MG, QW
  21. GUAIFENESIN [Concomitant]
     Dosage: 400MG, 3 DF, BID
  22. GAVISCON [Concomitant]
     Dosage: 1 DF, BID, PRN
  23. DIFFERIN [Concomitant]
     Indication: ACNE
     Dosage: UNK, QD
     Route: 061
  24. MUCINEX [Concomitant]
     Dosage: 1 DF, BID
  25. LIDOCAINE [Concomitant]
     Indication: CHEST PAIN
     Dosage: UNK, TID, PRN
     Route: 061
  26. LIDOCAINE [Concomitant]
     Indication: COSTOCHONDRITIS
  27. VIAGRA [Concomitant]
     Dosage: 50 MG, PRN
     Route: 048
  28. IBUPROFEN [Concomitant]
     Indication: PAIN
     Dosage: 400 MG, EVERY 6 HOURS, PRN
  29. ZOFRAN [Concomitant]
     Indication: NAUSEA
     Dosage: 8 MG, EVERY 6-8 HOURS, PRN
     Route: 048
  30. LUNESTA [Concomitant]
     Dosage: 2-3MG
     Route: 048

REACTIONS (3)
  - Pneumonia [Recovered/Resolved with Sequelae]
  - Infective pulmonary exacerbation of cystic fibrosis [Unknown]
  - Forced expiratory volume decreased [Unknown]
